FAERS Safety Report 8130951-6 (Version None)
Quarter: 2012Q1

REPORT INFORMATION
  Report Type: 
  Country: None (occurrence: None)
  Receive Date: 20120213
  Receipt Date: 20120207
  Transmission Date: 20120608
  Serious: No
  Sender: FDA-Public Use
  Company Number: US-PFIZER INC-2012033696

PATIENT
  Sex: Male
  Weight: 59 kg

DRUGS (12)
  1. RANITIDINE [Concomitant]
     Indication: GASTROOESOPHAGEAL REFLUX DISEASE
     Dosage: UNK
  2. FOLIC ACID [Concomitant]
     Dosage: UNK
  3. VITAMIN B6 [Concomitant]
     Dosage: UNK
  4. HYDROCODONE [Concomitant]
     Indication: OSTEOARTHRITIS
     Dosage: UNK
  5. LOVAZA [Concomitant]
     Indication: OSTEOARTHRITIS
     Dosage: UNK
  6. VITAMIN B-12 [Concomitant]
     Dosage: UNK
  7. PRAVASTATIN [Concomitant]
     Indication: BLOOD CHOLESTEROL INCREASED
     Dosage: UNK
  8. LYRICA [Suspect]
     Indication: FIBROMYALGIA
     Dosage: UNK, 1X/DAY
     Route: 048
  9. LOSARTAN [Concomitant]
     Indication: HYPERTENSION
     Dosage: UNK
  10. AGGRENOX [Concomitant]
     Indication: CARDIAC DISORDER
     Dosage: UNK
  11. GLUCOSAMINE [Concomitant]
     Indication: OSTEOARTHRITIS
     Dosage: UNK
  12. FISH OIL [Concomitant]
     Indication: OSTEOARTHRITIS
     Dosage: UNK

REACTIONS (1)
  - FEELING ABNORMAL [None]
